FAERS Safety Report 14993731 (Version 1)
Quarter: 2018Q2

REPORT INFORMATION
  Report Type: Spontaneous
  Country: DE (occurrence: DE)
  Receive Date: 20180611
  Receipt Date: 20180611
  Transmission Date: 20180711
  Serious: Yes (Hospitalization)
  Sender: FDA-Public Use
  Company Number: DE-TEVA-2018-DE-904129

PATIENT
  Age: 44 Year
  Sex: Male

DRUGS (9)
  1. MADOPAR DEPOT [Concomitant]
     Active Substance: BENSERAZIDE HYDROCHLORIDE\LEVODOPA
     Dosage: 100|25 MG, 1.5-1.5-1.5-1.5
     Route: 065
  2. AMANTADIN [Concomitant]
     Active Substance: AMANTADINE
     Dosage: 1-1-0-0
     Route: 065
  3. MADOPAR DEPOT [Concomitant]
     Active Substance: BENSERAZIDE HYDROCHLORIDE\LEVODOPA
     Dosage: 100|25 MG, 0-0-0-1
     Route: 065
  4. IBUPROFEN. [Suspect]
     Active Substance: IBUPROFEN
     Dosage: NK
     Route: 065
  5. MADOPAR DEPOT [Concomitant]
     Active Substance: BENSERAZIDE HYDROCHLORIDE\LEVODOPA
     Dosage: 100|25 MG, 1-0-0-0
     Route: 065
  6. ESCITALOPRAM [Suspect]
     Active Substance: ESCITALOPRAM OXALATE
     Dosage: 1-0-0
     Route: 065
  7. NEUPRO [Suspect]
     Active Substance: ROTIGOTINE
     Dosage: 14 MG, 1-0-0-0
     Route: 062
  8. BORNAPRIN [Suspect]
     Active Substance: BORNAPRINE
     Dosage: 1-0.5-1-0
     Route: 065
  9. AMITRIPTYLIN [Concomitant]
     Active Substance: AMITRIPTYLINE
     Dosage: 0-0-0-1
     Route: 065

REACTIONS (2)
  - Dyspepsia [Unknown]
  - Abdominal pain upper [Unknown]
